FAERS Safety Report 23409826 (Version 1)
Quarter: 2024Q1

REPORT INFORMATION
  Report Type: Spontaneous
  Country: US (occurrence: US)
  Receive Date: 20240117
  Receipt Date: 20240117
  Transmission Date: 20240410
  Serious: No
  Sender: FDA-Public Use
  Company Number: US-PFIZER INC-PV202400005279

PATIENT
  Age: 59 Year
  Sex: Female
  Weight: 66.1 kg

DRUGS (3)
  1. IBRANCE [Suspect]
     Active Substance: PALBOCICLIB
     Indication: Breast cancer metastatic
     Dosage: 100 MG, CYCLIC (TAKES ON DAYS 1-21 OF A 28 DAY CYCLE AND THEN 7 DAYS OFF)
     Route: 048
     Dates: start: 20220322
  2. IBRANCE [Suspect]
     Active Substance: PALBOCICLIB
     Indication: Breast cancer stage IV
  3. LETROZOLE [Concomitant]
     Active Substance: LETROZOLE
     Dosage: UNK, DAILY
     Dates: start: 20220322

REACTIONS (2)
  - Hot flush [Unknown]
  - Muscle tightness [Recovering/Resolving]
